FAERS Safety Report 9358369 (Version 1)
Quarter: 2013Q2

REPORT INFORMATION
  Report Type: Spontaneous
  Country: CH (occurrence: CH)
  Receive Date: 20130620
  Receipt Date: 20130620
  Transmission Date: 20140414
  Serious: Yes (Hospitalization)
  Sender: FDA-Public Use
  Company Number: CH-ASTRAZENECA-2013SE42793

PATIENT
  Age: 51 Year
  Sex: Female
  Weight: 61.2 kg

DRUGS (8)
  1. SEROQUEL [Suspect]
     Route: 048
     Dates: end: 20130507
  2. STILNOX [Suspect]
     Route: 048
     Dates: end: 20130507
  3. TRITTICO [Suspect]
     Route: 048
     Dates: end: 20130507
  4. TORASEM [Concomitant]
     Route: 048
  5. SIMVASTATIN [Concomitant]
     Route: 048
  6. TEGRETOL [Concomitant]
     Indication: EPILEPSY
     Route: 048
  7. ACTONEL [Concomitant]
     Route: 048
  8. TRUXAL [Concomitant]
     Route: 048

REACTIONS (5)
  - Toxicity to various agents [Recovered/Resolved]
  - Drug abuse [Recovered/Resolved]
  - Confusional state [Recovering/Resolving]
  - Psychomotor hyperactivity [Recovering/Resolving]
  - Insomnia [Recovered/Resolved]
